FAERS Safety Report 6211612-7 (Version None)
Quarter: 2009Q2

REPORT INFORMATION
  Report Type: 
  Country: None (occurrence: None)
  Receive Date: 20090522
  Receipt Date: 20090413
  Transmission Date: 20091009
  Serious: No
  Sender: FDA-Public Use
  Company Number: 8044771

PATIENT
  Age: 58 Year
  Sex: Female
  Weight: 45.4 kg

DRUGS (4)
  1. CIMZIA [Suspect]
     Indication: CROHN'S DISEASE
     Dosage: 400 MG /M SC
     Route: 058
     Dates: start: 20080825
  2. CIMZIA [Suspect]
     Indication: CROHN'S DISEASE
     Dosage: 1/2W SC
     Route: 058
  3. ASACOL [Concomitant]
  4. PLAQUENIL [Concomitant]

REACTIONS (3)
  - ARTHRITIS [None]
  - CROHN'S DISEASE [None]
  - DRUG INEFFECTIVE [None]
